FAERS Safety Report 7551091-0 (Version None)
Quarter: 2011Q2

REPORT INFORMATION
  Report Type: 
  Country: None (occurrence: None)
  Receive Date: 20110616
  Receipt Date: 20110609
  Transmission Date: 20111010
  Serious: Yes (Hospitalization)
  Sender: FDA-Public Use
  Company Number: US-BRISTOL-MYERS SQUIBB COMPANY-15816374

PATIENT
  Age: 73 Year
  Sex: Female
  Weight: 90 kg

DRUGS (3)
  1. RHUMAB-VEGF [Suspect]
     Indication: ENDOMETRIAL CANCER
     Dosage: LAST DOSE ON 27APR2011.15 MG/KG IV OVER 3 0-90 MINUTES ON DAY 1 * 6 CYCLE.
     Route: 042
     Dates: start: 20110330
  2. IXEMPRA KIT [Suspect]
     Indication: ENDOMETRIAL CANCER
     Dosage: LAST DOSE ON 27APR2011.30 MG/M2,25 MG/M2 IV OVER 1 HR ON DAY I X 6 CYCLES,
     Route: 042
     Dates: start: 20110330
  3. CARBOPLATIN [Suspect]
     Indication: ENDOMETRIAL CANCER
     Dosage: LAST DOSE ON 27APR2011.AUC = 6 IV,5 IV OVER 30 MINUTES ON DAY 1 X 6 CYCLES.
     Route: 042
     Dates: start: 20110330

REACTIONS (1)
  - DYSPNOEA [None]
